FAERS Safety Report 5480359-7 (Version None)
Quarter: 2007Q4

REPORT INFORMATION
  Report Type: 
  Country: None (occurrence: None)
  Receive Date: 20071009
  Receipt Date: 20071003
  Transmission Date: 20080405
  Serious: Yes (Other)
  Sender: FDA-Public Use
  Company Number: CA-ASTRAZENECA-2007UW23218

PATIENT
  Age: 57 Year
  Sex: Female

DRUGS (6)
  1. CRESTOR [Suspect]
     Route: 048
     Dates: start: 20070901
  2. CRESTOR [Suspect]
     Route: 048
     Dates: end: 20070101
  3. ACTOS [Concomitant]
     Indication: DIABETES MELLITUS
     Route: 048
  4. ALLOPURINOL [Concomitant]
     Indication: GOUT
     Route: 048
  5. TIAZAC [Concomitant]
     Indication: HYPERTENSION
     Route: 048
  6. VENTOLIN [Concomitant]
     Indication: ASTHMA
     Route: 055

REACTIONS (3)
  - CHROMATURIA [None]
  - MUSCLE SPASMS [None]
  - RESTLESS LEGS SYNDROME [None]
